FAERS Safety Report 14878297 (Version 1)
Quarter: 2018Q2

REPORT INFORMATION
  Report Type: Report from Study
  Country: DE (occurrence: DE)
  Receive Date: 20180511
  Receipt Date: 20180511
  Transmission Date: 20180711
  Serious: Yes (Death)
  Sender: FDA-Public Use
  Company Number: DE-ROCHE-2090440

PATIENT
  Age: 41 Year
  Sex: Female
  Weight: 110 kg

DRUGS (2)
  1. BEVACIZUMAB. [Suspect]
     Active Substance: BEVACIZUMAB
     Indication: BREAST CANCER
     Route: 042
     Dates: start: 20151208, end: 20160815
  2. PACLITAXEL. [Concomitant]
     Active Substance: PACLITAXEL
     Indication: BREAST CANCER
     Route: 042
     Dates: start: 20151208, end: 20160518

REACTIONS (2)
  - Death [Fatal]
  - Aspartate aminotransferase abnormal [Unknown]

NARRATIVE: CASE EVENT DATE: 20160926
